FAERS Safety Report 5591140-2 (Version None)
Quarter: 2008Q1

REPORT INFORMATION
  Report Type: 
  Country: None (occurrence: None)
  Receive Date: 20080110
  Receipt Date: 20080110
  Transmission Date: 20080703
  Serious: Yes (Congenital Anomaly, Other)
  Sender: FDA-Public Use
  Company Number: None

PATIENT
  Age: 49 Year
  Sex: Male
  Weight: 95.2554 kg

DRUGS (1)
  1. AMITRIPTLINE HCL [Suspect]
     Indication: SLEEP APNOEA SYNDROME
     Dosage: 150MG NIGHTLY PO
     Route: 048
     Dates: start: 20071112, end: 20080105

REACTIONS (5)
  - BLOOD URINE PRESENT [None]
  - HAEMATOSPERMIA [None]
  - LIBIDO DECREASED [None]
  - SCROTAL DISORDER [None]
  - TREMOR [None]
